FAERS Safety Report 20558134 (Version 2)
Quarter: 2022Q2

REPORT INFORMATION
  Report Type: Report from Study
  Country: US (occurrence: US)
  Receive Date: 20220307
  Receipt Date: 20220421
  Transmission Date: 20220721
  Serious: Yes (Congenital Anomaly)
  Sender: FDA-Public Use
  Company Number: US-UCBSA-2022009919

PATIENT
  Age: 0 Year
  Sex: Male
  Weight: 3.4 kg

DRUGS (10)
  1. CERTOLIZUMAB PEGOL [Suspect]
     Active Substance: CERTOLIZUMAB PEGOL
     Indication: Rheumatoid arthritis
     Dosage: 200 MILLIGRAM, 2X/MONTH
     Route: 064
     Dates: start: 20200501, end: 20210102
  2. CHOLINE [Concomitant]
     Active Substance: CHOLINE
     Indication: Supplementation therapy
     Dosage: 350 MILLIGRAM, ONCE DAILY (QD)
     Route: 064
     Dates: start: 20200721, end: 20210115
  3. MINERALS\VITAMINS [Concomitant]
     Active Substance: MINERALS\VITAMINS
     Indication: Product used for unknown indication
     Dosage: 1 DOSAGE FORM, ONCE DAILY (QD)
     Route: 064
     Dates: start: 20200115, end: 20210115
  4. BENADRYL [Concomitant]
     Active Substance: DIPHENHYDRAMINE HYDROCHLORIDE
     Indication: Tooth extraction
     Dosage: 1 DOSAGE FORM, ONCE DAILY (QD)
     Route: 064
     Dates: start: 20200902, end: 20200902
  5. TUMS [Concomitant]
     Active Substance: CALCIUM CARBONATE
     Indication: Abdominal discomfort
     Dosage: 1 DOSAGE FORM, ONCE DAILY (QD)
     Route: 064
     Dates: start: 20200701, end: 20200731
  6. TETANUS TOXOID, REDUCED DIPHTHERIA TOXOID AND ACELLULAR PERTUSSIS VACC [Concomitant]
     Active Substance: TETANUS TOXOID, REDUCED DIPHTHERIA TOXOID AND ACELLULAR PERTUSSIS VACCINE ADSORBED, TDAP
     Indication: Product used for unknown indication
     Dosage: 1 SHOT 1 DAY
     Route: 064
     Dates: start: 20201104, end: 20201104
  7. RHOGAM [Concomitant]
     Active Substance: HUMAN RHO(D) IMMUNE GLOBULIN
     Indication: Product used for unknown indication
     Dosage: 1 SHOT 1 DAY
     Route: 064
     Dates: start: 20200604, end: 20200604
  8. RHOGAM [Concomitant]
     Active Substance: HUMAN RHO(D) IMMUNE GLOBULIN
     Dosage: 1 SHOT 1 DAY
     Route: 064
     Dates: start: 20201028, end: 20201028
  9. TYLENOL [Concomitant]
     Active Substance: ACETAMINOPHEN
     Indication: Tooth extraction
     Dosage: 750 MILLIGRAM, ONCE DAILY (QD)
     Route: 064
     Dates: start: 20200902, end: 20200903
  10. INFLUENZA VIRUS VACCINE [Concomitant]
     Active Substance: INFLUENZA VIRUS VACCINE
     Indication: Product used for unknown indication
     Dosage: 1 SHOT 1 DAY
     Route: 064
     Dates: start: 20200930, end: 20200930

REACTIONS (4)
  - Atrial septal defect [Unknown]
  - Hypospadias [Unknown]
  - Maternal exposure before pregnancy [Unknown]
  - Maternal exposure during pregnancy [Unknown]

NARRATIVE: CASE EVENT DATE: 20200501
